FAERS Safety Report 8112605-5 (Version None)
Quarter: 2012Q1

REPORT INFORMATION
  Report Type: 
  Country: None (occurrence: None)
  Receive Date: 20120131
  Receipt Date: 20120118
  Transmission Date: 20120608
  Serious: Yes (Disabling, Other)
  Sender: FDA-Public Use
  Company Number: 2012MA000880

PATIENT
  Sex: Male
  Weight: 202.3043 kg

DRUGS (34)
  1. BENADRYL [Concomitant]
  2. LORAZEPAM [Concomitant]
  3. ZINC SULFATE [Concomitant]
  4. ZYRTEC [Concomitant]
  5. COUMADIN [Concomitant]
  6. BISOPROLOL FUMARATE [Concomitant]
  7. CARDIZEM [Concomitant]
  8. CORDARONE [Concomitant]
  9. KLOR-CON [Concomitant]
  10. ACETAMINOPHEN [Concomitant]
  11. DILTIAZEM [Concomitant]
  12. FUROSEMIDE [Concomitant]
  13. GLIPIZIDE [Concomitant]
  14. PREDNISONE TAB [Concomitant]
  15. SPIRONOLACTONE [Concomitant]
  16. SYNTHROID [Concomitant]
  17. ZANTAC [Concomitant]
  18. ZEBETA [Concomitant]
  19. DIGOXIN [Suspect]
     Dosage: 0.25 MG;QD;PO
     Route: 048
     Dates: start: 20061103, end: 20090507
  20. ALDACTONE [Concomitant]
  21. ALLOPURINOL [Concomitant]
  22. AVAPRO [Concomitant]
  23. FUMARETE [Concomitant]
  24. THYROID [Concomitant]
  25. DEMEROL [Concomitant]
  26. N-GLYCOSIDE [Concomitant]
  27. POTASSIUM [Concomitant]
  28. POTASSIUM CHLORIDE [Concomitant]
  29. PRILOSEC [Concomitant]
  30. ROCEPHIN [Concomitant]
  31. CLONIDIDNE [Concomitant]
  32. HYDROCHLOROTHIAZIDE [Concomitant]
  33. LORTAB [Concomitant]
  34. ZAROXOLYN [Concomitant]

REACTIONS (24)
  - ATRIAL FIBRILLATION [None]
  - HYPOKINESIA [None]
  - HYPOTENSION [None]
  - DEHYDRATION [None]
  - HYPERTENSION [None]
  - PROTEUS INFECTION [None]
  - BRAIN MIDLINE SHIFT [None]
  - URINARY TRACT INFECTION [None]
  - HAEMORRHAGE INTRACRANIAL [None]
  - GASTROINTESTINAL INFECTION [None]
  - SLEEP APNOEA SYNDROME [None]
  - CARDIAC MURMUR [None]
  - SOMNOLENCE [None]
  - OBESITY [None]
  - COR PULMONALE [None]
  - TYPE 2 DIABETES MELLITUS [None]
  - DERMATITIS ALLERGIC [None]
  - SLEEP DISORDER [None]
  - BRADYCARDIA [None]
  - RIGHT VENTRICULAR FAILURE [None]
  - TRICUSPID VALVE INCOMPETENCE [None]
  - ARRHYTHMIA [None]
  - VENOUS INSUFFICIENCY [None]
  - INFARCTION [None]
